FAERS Safety Report 8988096 (Version 5)
Quarter: 2013Q3

REPORT INFORMATION
  Report Type: Report from Study
  Country: US (occurrence: US)
  Receive Date: 20121227
  Receipt Date: 20130809
  Transmission Date: 20140515
  Serious: Yes (Hospitalization)
  Sender: FDA-Public Use
  Company Number: US-EISAI INC-E2007-00916-CLI-US

PATIENT
  Age: 11 Year
  Sex: Female
  Weight: 55.6 kg

DRUGS (6)
  1. E2007 [Suspect]
     Indication: EPILEPSY
     Dosage: CORE STUDY
     Route: 048
     Dates: start: 20120502, end: 20130619
  2. E2007 [Suspect]
     Route: 048
     Dates: start: 20120620, end: 20130430
  3. DEPAKOTE [Concomitant]
     Indication: EPILEPSY
     Route: 048
     Dates: start: 201007
  4. ZYRTEC [Concomitant]
  5. DEPAKOTE ER [Concomitant]
     Indication: EPILEPSY
     Route: 048
     Dates: start: 20120416
  6. PROPRANOLOL [Concomitant]
     Dates: start: 20100429, end: 20120720

REACTIONS (1)
  - Hypoglycaemia [Recovered/Resolved]
